FAERS Safety Report 8956176 (Version 2)
Quarter: 2012Q4

REPORT INFORMATION
  Report Type: 
  Country: US (occurrence: US)
  Receive Date: 20121210
  Receipt Date: 20121221
  Transmission Date: 20130627
  Serious: No
  Sender: FDA-Public Use
  Company Number: PHEH2012US024182

PATIENT
  Sex: Female
  Weight: 161 kg

DRUGS (5)
  1. GILENYA [Suspect]
     Indication: RELAPSING-REMITTING MULTIPLE SCLEROSIS
     Dosage: 0.5 mg, QD
     Route: 048
     Dates: start: 201107
  2. CYMBALTA [Concomitant]
     Route: 048
  3. FLUXENE [Concomitant]
     Dosage: 10 mg, UNK
     Route: 048
  4. OXYBUTYN [Concomitant]
     Dosage: 5 mg, TID
     Route: 048
  5. ULTRAM [Concomitant]
     Dosage: 1 DF, TID
     Route: 048

REACTIONS (1)
  - Pollakiuria [Unknown]
